FAERS Safety Report 8120351-7 (Version None)
Quarter: 2012Q1

REPORT INFORMATION
  Report Type: 
  Country: None (occurrence: None)
  Receive Date: 20120207
  Receipt Date: 20120202
  Transmission Date: 20120608
  Serious: Yes (Hospitalization)
  Sender: FDA-Public Use
  Company Number: US-GLAXOSMITHKLINE-A0964869A

PATIENT
  Sex: Male
  Weight: 84.1 kg

DRUGS (8)
  1. METOPROLOL TARTRATE [Concomitant]
  2. CYTOMEL [Concomitant]
  3. LISINOPRIL [Concomitant]
  4. AVANDIA [Suspect]
     Indication: DIABETES MELLITUS
     Dosage: 4MG TWICE PER DAY
     Route: 048
  5. METFORMIN HCL [Concomitant]
  6. ALBUTEROL [Concomitant]
  7. GLIPIZIDE [Concomitant]
  8. VIAGRA [Concomitant]

REACTIONS (4)
  - POST PROCEDURAL MYOCARDIAL INFARCTION [None]
  - CORONARY ARTERY BYPASS [None]
  - CAROTID ARTERY STENOSIS [None]
  - TRANSIENT ISCHAEMIC ATTACK [None]
